FAERS Safety Report 24744576 (Version 1)
Quarter: 2024Q4

REPORT INFORMATION
  Report Type: Spontaneous
  Country: GB (occurrence: GB)
  Receive Date: 20241217
  Receipt Date: 20241217
  Transmission Date: 20250115
  Serious: Yes (Other)
  Sender: BOEHRINGER INGELHEIM
  Company Number: GB-MHRA-EMIS-1224-4840c936-9d6f-4769-bbea-1e7db8a56e41

PATIENT
  Age: 79 Year
  Sex: Male
  Weight: 92 kg

DRUGS (6)
  1. LINAGLIPTIN [Suspect]
     Active Substance: LINAGLIPTIN
     Indication: Product used for unknown indication
     Dates: start: 20200804, end: 20241121
  2. IBUPROFEN [Concomitant]
     Active Substance: IBUPROFEN
     Indication: Arthralgia
     Dosage: THREE TIMES A DAY TO PAINFUL JOINTS
     Dates: start: 20241007, end: 20241119
  3. MENTHOL [Concomitant]
     Active Substance: MENTHOL
     Indication: Pruritus
     Dates: start: 20241007, end: 20241119
  4. Spikevax JN.1 COVID-19 mRNA Vaccine [Concomitant]
     Indication: Product used for unknown indication
     Route: 030
     Dates: start: 20241029
  5. Fultium-D3 800unit capsules (Internis Pharmaceuticals Ltd) [Concomitant]
     Indication: Product used for unknown indication
     Dosage: FOR 4MTHS THEN STOP- VIT D
     Dates: start: 20241105
  6. FUCIDIN [Concomitant]
     Active Substance: FUSIDATE SODIUM
     Indication: Product used for unknown indication
     Dosage: APPLY THREE TIMES A DAY
     Dates: start: 20241121

REACTIONS (1)
  - Dermatitis bullous [Recovering/Resolving]

NARRATIVE: CASE EVENT DATE: 20241121
